FAERS Safety Report 21412400 (Version 1)
Quarter: 2022Q4

REPORT INFORMATION
  Report Type: Spontaneous
  Country: US (occurrence: US)
  Receive Date: 20221005
  Receipt Date: 20221005
  Transmission Date: 20230113
  Serious: No
  Sender: FDA-Public Use
  Company Number: US-INTRA-CELLULAR THERAPIES, INC.-2022ICT01041

PATIENT
  Sex: Female

DRUGS (2)
  1. CAPLYTA [Suspect]
     Active Substance: LUMATEPERONE
     Indication: Schizophrenia
     Dosage: ^USE AS DIRECTED^
  2. CAPLYTA [Suspect]
     Active Substance: LUMATEPERONE
     Dosage: ^USE AS DIRECTED^

REACTIONS (4)
  - Anxiety [Unknown]
  - Affective disorder [Unknown]
  - Therapy interrupted [Recovered/Resolved]
  - Drug ineffective [Recovered/Resolved]
